FAERS Safety Report 25956619 (Version 1)
Quarter: 2025Q4

REPORT INFORMATION
  Report Type: Spontaneous
  Country: MY (occurrence: MY)
  Receive Date: 20251024
  Receipt Date: 20251024
  Transmission Date: 20260117
  Serious: Yes (Other)
  Sender: ROCHE
  Company Number: MY-ROCHE-10000377937

PATIENT
  Age: 73 Year
  Sex: Female

DRUGS (1)
  1. VABYSMO [Suspect]
     Active Substance: FARICIMAB-SVOA
     Indication: Haematocrit
     Dosage: 4 TIMES MONTHLY, 5TH AT 6 WEEKS AFTER 4TH CLOSE.
     Route: 050
     Dates: start: 20250212, end: 20250820

REACTIONS (4)
  - Eye inflammation [Unknown]
  - Vasculitis [Recovered/Resolved]
  - Keratic precipitates [Unknown]
  - Ocular hyperaemia [Recovered/Resolved]

NARRATIVE: CASE EVENT DATE: 20250820
